FAERS Safety Report 10515110 (Version 1)
Quarter: 2014Q4

REPORT INFORMATION
  Report Type: Spontaneous
  Country: GR (occurrence: GR)
  Receive Date: 20141014
  Receipt Date: 20141014
  Transmission Date: 20150528
  Serious: Yes (Other)
  Sender: FDA-Public Use
  Company Number: GR-ROCHE-1471541

PATIENT
  Age: 86 Year
  Sex: Female

DRUGS (3)
  1. AVASTIN [Suspect]
     Active Substance: BEVACIZUMAB
     Indication: MACULAR DEGENERATION
     Route: 065
  2. TOBREX [Suspect]
     Active Substance: TOBRAMYCIN
     Indication: PRODUCT USED FOR UNKNOWN INDICATION
     Route: 047
  3. CHLORAMPHENICOL/DEXAMETHASONE [Suspect]
     Active Substance: CHLORAMPHENICOL\DEXAMETHASONE
     Indication: PRODUCT USED FOR UNKNOWN INDICATION
     Dosage: FOR ABOUT 2 YEARS
     Route: 065

REACTIONS (7)
  - Eye disorder [Unknown]
  - Blindness unilateral [Unknown]
  - Eye excision [Unknown]
  - Product use issue [Unknown]
  - Intentional product misuse [Unknown]
  - Endophthalmitis [Unknown]
  - Iridectomy [Unknown]
